FAERS Safety Report 7296410-8 (Version None)
Quarter: 2011Q1

REPORT INFORMATION
  Report Type: 
  Country: None (occurrence: None)
  Receive Date: 20110216
  Receipt Date: 20110124
  Transmission Date: 20110831
  Serious: No
  Sender: FDA-Public Use
  Company Number: US-B.I. PHARMACEUTICALS,INC./RIDGEFIELD-2010-BP-14205BP

PATIENT
  Age: 72 Year
  Sex: Female

DRUGS (10)
  1. LISINOPRIL AND HYDROCHLOROTHIAZIDE [Concomitant]
     Dosage: 10/12 DAILY
  2. PRADAXA [Suspect]
     Indication: ATRIAL FIBRILLATION
  3. FLECAINIDE [Concomitant]
     Dosage: 200 MG
     Route: 048
  4. PREVASTATIN [Concomitant]
     Dosage: 40 MG
     Route: 048
  5. METOPROLOL [Concomitant]
     Dosage: 1/2 TAB BID
  6. ASPIRIN [Concomitant]
     Dosage: 81 MG
     Route: 048
  7. PRADAXA [Suspect]
     Indication: CEREBROVASCULAR ACCIDENT PROPHYLAXIS
     Dosage: 150 MG
     Route: 048
     Dates: start: 20101101
  8. FISH OIL [Concomitant]
     Route: 048
  9. CITRACAL +D3 [Concomitant]
     Dosage: DAILY
     Route: 048
  10. MULTI-VITAMIN [Concomitant]
     Dosage: DAILY
     Route: 048

REACTIONS (4)
  - NAUSEA [None]
  - DYSPEPSIA [None]
  - FAECES DISCOLOURED [None]
  - EPISTAXIS [None]
